FAERS Safety Report 8298237-7 (Version None)
Quarter: 2012Q2

REPORT INFORMATION
  Report Type: 
  Country: None (occurrence: None)
  Receive Date: 20120419
  Receipt Date: 20120222
  Transmission Date: 20120825
  Serious: No
  Sender: FDA-Public Use
  Company Number: US-BRISTOL-MYERS SQUIBB COMPANY-16410581

PATIENT
  Age: 72 Year
  Sex: Male

DRUGS (1)
  1. YERVOY [Suspect]
     Dosage: INTERRUPTE FOR 2 WKS AND 2ND DOSE ON 09FEB2012
     Dates: start: 20120105

REACTIONS (2)
  - PRURITUS [None]
  - RASH [None]
